FAERS Safety Report 6424338-1 (Version None)
Quarter: 2009Q4

REPORT INFORMATION
  Report Type: 
  Country: None (occurrence: None)
  Receive Date: 20091103
  Receipt Date: 20091023
  Transmission Date: 20100525
  Serious: Yes (Other)
  Sender: FDA-Public Use
  Company Number: CH-BIOGENIDEC-2009BI032001

PATIENT
  Age: 24 Year
  Sex: Female

DRUGS (2)
  1. TYSABRI [Suspect]
     Indication: MULTIPLE SCLEROSIS
     Route: 042
     Dates: end: 20070323
  2. TYSABRI [Suspect]
     Route: 042
     Dates: start: 20071022, end: 20090210

REACTIONS (12)
  - ACTIVITIES OF DAILY LIVING IMPAIRED [None]
  - BACTERIAL TEST POSITIVE [None]
  - BLADDER CATHETERISATION [None]
  - CYSTITIS PSEUDOMONAL [None]
  - ESCHERICHIA URINARY TRACT INFECTION [None]
  - HIP ARTHROPLASTY [None]
  - JOINT DISLOCATION [None]
  - JOINT PROSTHESIS USER [None]
  - MULTIPLE SCLEROSIS RELAPSE [None]
  - MUSCLE SPASTICITY [None]
  - STAPHYLOCOCCAL ABSCESS [None]
  - STREPTOCOCCAL ABSCESS [None]
